FAERS Safety Report 10990324 (Version 1)
Quarter: 2015Q2

REPORT INFORMATION
  Report Type: Spontaneous
  Country: FR (occurrence: FR)
  Receive Date: 20150406
  Receipt Date: 20150406
  Transmission Date: 20150821
  Serious: Yes (Hospitalization)
  Sender: FDA-Public Use
  Company Number: FR-SA-2015SA038979

PATIENT
  Age: 93 Year
  Sex: Male

DRUGS (7)
  1. LEVOTHYROX [Concomitant]
     Active Substance: LEVOTHYROXINE
  2. SECTRAL [Suspect]
     Active Substance: ACEBUTOLOL HYDROCHLORIDE
     Dosage: 100 MG, 2 DAY(S), MORNING
     Route: 048
     Dates: end: 20150114
  3. LASILIX [Suspect]
     Active Substance: FUROSEMIDE
     Route: 048
     Dates: start: 20150112, end: 20150115
  4. ENALAPRIL [Suspect]
     Active Substance: ENALAPRIL
     Dosage: 1) (5 MG, 1 DAY(S)), MORNING
     Route: 048
  5. LASILIX [Suspect]
     Active Substance: FUROSEMIDE
     Route: 048
  6. ENALAPRIL [Suspect]
     Active Substance: ENALAPRIL
     Dosage: 1) (5 MG, 1 DAY(S)), MORNING
     Route: 048
     Dates: end: 20150113
  7. PARACETAMOL [Concomitant]
     Active Substance: ACETAMINOPHEN
     Dosage: 2 X 3 DAY

REACTIONS (2)
  - Hypotension [Recovered/Resolved]
  - Fall [Recovered/Resolved]

NARRATIVE: CASE EVENT DATE: 201501
